FAERS Safety Report 8950004 (Version 1)
Quarter: 2012Q4

REPORT INFORMATION
  Report Type: 
  Country: CN (occurrence: CN)
  Receive Date: 20121205
  Receipt Date: 20121205
  Transmission Date: 20130627
  Serious: Yes (Other)
  Sender: FDA-Public Use
  Company Number: CN-ABBOTT-12P-035-1017892-00

PATIENT

DRUGS (8)
  1. SEVOFLURANE [Suspect]
     Indication: INDUCTION OF ANAESTHESIA
  2. SEVOFLURANE [Suspect]
     Indication: MAINTENANCE OF ANAESTHESIA
     Dosage: 2-3 %
  3. REMIFENTANIL [Suspect]
     Indication: MAINTENANCE OF ANAESTHESIA
     Dosage: 0.05-0.2 MCG/KG/MIN
  4. LIDOCAINE [Concomitant]
     Indication: LARYNGOSPASM
     Dosage: 3-5 MG/KG
  5. LIDOCAINE [Concomitant]
     Indication: ARRHYTHMIA
  6. LIDOCAINE [Concomitant]
     Indication: PROPHYLAXIS
  7. LIDOCAINE [Concomitant]
     Indication: PROPHYLAXIS
  8. ANTIBIOTIC [Concomitant]
     Indication: PRODUCT USED FOR UNKNOWN INDICATION

REACTIONS (1)
  - Unwanted awareness during anaesthesia [Unknown]
